FAERS Safety Report 5253198-X (Version None)
Quarter: 2007Q1

REPORT INFORMATION
  Report Type: 
  Country: None (occurrence: None)
  Receive Date: 20070301
  Receipt Date: 20070226
  Transmission Date: 20070707
  Serious: Yes (Disabling, Other)
  Sender: FDA-Public Use
  Company Number: ES-MERCK-0702ESP00058

PATIENT
  Age: 54 Year
  Sex: Male

DRUGS (2)
  1. MAXALT [Suspect]
     Indication: MIGRAINE
     Route: 048
     Dates: start: 20060223, end: 20060223
  2. IBUPROFEN ARGININE [Concomitant]
     Route: 065

REACTIONS (1)
  - DERMATITIS ALLERGIC [None]
